FAERS Safety Report 5847928-3 (Version None)
Quarter: 2008Q3

REPORT INFORMATION
  Report Type: 
  Country: None (occurrence: None)
  Receive Date: 20080814
  Receipt Date: 20080814
  Transmission Date: 20090109
  Serious: Yes (Other)
  Sender: FDA-Public Use
  Company Number: None

PATIENT
  Sex: Male
  Weight: 117.9352 kg

DRUGS (2)
  1. DIGITEK  0.25MG [Suspect]
     Indication: ATRIAL FIBRILLATION
     Dosage: ONE DAILY PO
     Route: 048
     Dates: start: 19971201, end: 20080701
  2. DIGITEK  0.25MG [Suspect]
     Indication: HEART RATE IRREGULAR
     Dosage: ONE DAILY PO
     Route: 048
     Dates: start: 19971201, end: 20080701

REACTIONS (3)
  - ATRIAL FIBRILLATION [None]
  - CEREBROVASCULAR ACCIDENT [None]
  - GALLBLADDER OPERATION [None]
